FAERS Safety Report 9540541 (Version 1)
Quarter: 2013Q3

REPORT INFORMATION
  Report Type: Spontaneous
  Country: IT (occurrence: IT)
  Receive Date: 20130920
  Receipt Date: 20130920
  Transmission Date: 20140515
  Serious: Yes (Hospitalization)
  Sender: FDA-Public Use
  Company Number: IT-PFIZER INC-2013271073

PATIENT
  Age: 83 Year
  Sex: Male

DRUGS (5)
  1. HALCION [Suspect]
     Dosage: 3.5 MG, SINGLE
     Dates: start: 20130915, end: 20130915
  2. SOTALOL [Concomitant]
  3. TICLOPIDINE [Concomitant]
  4. ZARELIS [Concomitant]
  5. LORANS [Concomitant]
     Dosage: 1.25 MG, UNK
     Route: 048

REACTIONS (3)
  - Intentional overdose [Recovering/Resolving]
  - Fall [Unknown]
  - Toxicity to various agents [Recovering/Resolving]
